FAERS Safety Report 25782144 (Version 1)
Quarter: 2025Q3

REPORT INFORMATION
  Report Type: Spontaneous
  Country: CN (occurrence: CN)
  Receive Date: 20250909
  Receipt Date: 20250909
  Transmission Date: 20251020
  Serious: Yes (Other)
  Sender: BEIGENE
  Company Number: CN-BEIGENE-BGN-2025-014911

PATIENT
  Age: 56 Year
  Weight: 50 kg

DRUGS (24)
  1. TISLELIZUMAB [Suspect]
     Active Substance: TISLELIZUMAB
     Indication: Squamous cell carcinoma of lung
  2. TISLELIZUMAB [Suspect]
     Active Substance: TISLELIZUMAB
     Route: 041
  3. TISLELIZUMAB [Suspect]
     Active Substance: TISLELIZUMAB
     Route: 041
  4. TISLELIZUMAB [Suspect]
     Active Substance: TISLELIZUMAB
  5. SODIUM CHLORIDE [Concomitant]
     Active Substance: SODIUM CHLORIDE
     Indication: Vehicle solution use
  6. SODIUM CHLORIDE [Concomitant]
     Active Substance: SODIUM CHLORIDE
     Route: 041
  7. SODIUM CHLORIDE [Concomitant]
     Active Substance: SODIUM CHLORIDE
     Route: 041
  8. SODIUM CHLORIDE [Concomitant]
     Active Substance: SODIUM CHLORIDE
  9. CARBOPLATIN [Concomitant]
     Active Substance: CARBOPLATIN
     Indication: Squamous cell carcinoma of lung
  10. CARBOPLATIN [Concomitant]
     Active Substance: CARBOPLATIN
     Route: 041
  11. CARBOPLATIN [Concomitant]
     Active Substance: CARBOPLATIN
     Route: 041
  12. CARBOPLATIN [Concomitant]
     Active Substance: CARBOPLATIN
  13. PACLITAXEL [Concomitant]
     Active Substance: PACLITAXEL
     Indication: Squamous cell carcinoma of lung
  14. PACLITAXEL [Concomitant]
     Active Substance: PACLITAXEL
     Route: 041
  15. PACLITAXEL [Concomitant]
     Active Substance: PACLITAXEL
     Route: 041
  16. PACLITAXEL [Concomitant]
     Active Substance: PACLITAXEL
  17. DEXTROSE [Concomitant]
     Active Substance: DEXTROSE MONOHYDRATE
     Indication: Vehicle solution use
  18. DEXTROSE [Concomitant]
     Active Substance: DEXTROSE MONOHYDRATE
  19. DEXTROSE [Concomitant]
     Active Substance: DEXTROSE MONOHYDRATE
     Route: 041
  20. DEXTROSE [Concomitant]
     Active Substance: DEXTROSE MONOHYDRATE
     Route: 041
  21. DEXTROSE [Concomitant]
     Active Substance: DEXTROSE MONOHYDRATE
  22. DEXTROSE [Concomitant]
     Active Substance: DEXTROSE MONOHYDRATE
  23. DEXTROSE [Concomitant]
     Active Substance: DEXTROSE MONOHYDRATE
     Route: 041
  24. DEXTROSE [Concomitant]
     Active Substance: DEXTROSE MONOHYDRATE
     Route: 041

REACTIONS (7)
  - Interstitial lung disease [Recovering/Resolving]
  - Neoplasm progression [Unknown]
  - Pneumonitis [Unknown]
  - Atelectasis [Unknown]
  - Haemoptysis [Unknown]
  - Dizziness [Unknown]
  - Asthenia [Unknown]
